FAERS Safety Report 14156736 (Version 1)
Quarter: 2017Q4

REPORT INFORMATION
  Report Type: Spontaneous
  Country: GB (occurrence: GB)
  Receive Date: 20171103
  Receipt Date: 20171103
  Transmission Date: 20180321
  Serious: Yes (Other)
  Sender: FDA-Public Use
  Company Number: GB-ACCORD-060430

PATIENT
  Age: 61 Year
  Sex: Female
  Weight: 60.77 kg

DRUGS (1)
  1. AMLODIPINE [Suspect]
     Active Substance: AMLODIPINE BESYLATE
     Indication: HYPERTENSION
     Route: 048
     Dates: start: 20171004, end: 20171005

REACTIONS (5)
  - Abdominal pain [Recovered/Resolved]
  - Depression [Unknown]
  - Malaise [Recovered/Resolved]
  - Coeliac disease [Unknown]
  - Condition aggravated [Unknown]

NARRATIVE: CASE EVENT DATE: 20171004
